FAERS Safety Report 6171754-1 (Version None)
Quarter: 2009Q2

REPORT INFORMATION
  Report Type: 
  Country: None (occurrence: None)
  Receive Date: 20090429
  Receipt Date: 20090422
  Transmission Date: 20091009
  Serious: Yes (Other)
  Sender: FDA-Public Use
  Company Number: US-JNJCH-2009011156

PATIENT
  Age: 67 Year
  Sex: Female
  Weight: 77.1 kg

DRUGS (5)
  1. BENGAY ULTRA STRENGTH [Suspect]
     Indication: BACK PAIN
     Dosage: TEXT:A LOT TWICE
     Route: 061
  2. ASPIRIN [Suspect]
     Indication: DRUG USE FOR UNKNOWN INDICATION
     Dosage: TEXT:UNSPECIFIED
     Route: 048
  3. HEPARIN [Suspect]
     Indication: DIALYSIS
     Dosage: TEXT:UNSPECIFIED
     Route: 065
  4. ISODIL [Concomitant]
     Indication: CARDIAC DISORDER
     Route: 048
  5. VITAMINS [Concomitant]
     Indication: DRUG USE FOR UNKNOWN INDICATION
     Dosage: TEXT:UNSPECIFIED
     Route: 048

REACTIONS (1)
  - EYE HAEMORRHAGE [None]
